FAERS Safety Report 21816374 (Version 1)
Quarter: 2023Q1

REPORT INFORMATION
  Report Type: Other
  Country: None (occurrence: IN)
  Receive Date: 20230104
  Receipt Date: 20230104
  Transmission Date: 20230418
  Serious: Yes (Hospitalization, Other)
  Sender: FDA-Public Use
  Company Number: IN-ACI HealthCare Limited-2136401

PATIENT
  Age: 30 Year
  Sex: Male

DRUGS (2)
  1. TRAMADOL HYDROCHLORIDE [Suspect]
     Active Substance: TRAMADOL HYDROCHLORIDE
     Indication: Back pain
     Route: 065
  2. ONDANSETRON [Interacting]
     Active Substance: ONDANSETRON
     Route: 065

REACTIONS (6)
  - Serotonin syndrome [Unknown]
  - Acute kidney injury [Recovered/Resolved]
  - Rhabdomyolysis [Unknown]
  - Myoglobinuria [Unknown]
  - Drug interaction [Unknown]
  - Product use in unapproved indication [Unknown]
